FAERS Safety Report 5325187-8 (Version None)
Quarter: 2007Q2

REPORT INFORMATION
  Report Type: 
  Country: None (occurrence: None)
  Receive Date: 20070515
  Receipt Date: 20070508
  Transmission Date: 20071010
  Serious: Yes (Other)
  Sender: FDA-Public Use
  Company Number: B0470275A

PATIENT
  Age: 5 Year
  Sex: Female

DRUGS (3)
  1. SOMATROPIN [Suspect]
     Dosage: 2.94MG WEEKLY
     Dates: start: 20040907
  2. LAMOTRIGINE [Suspect]
     Dates: start: 20060822
  3. KEFLEX [Concomitant]
     Dates: start: 20020928

REACTIONS (4)
  - KYPHOSIS [None]
  - LORDOSIS [None]
  - SCOLIOSIS [None]
  - SPINAL DEFORMITY [None]
